FAERS Safety Report 15278366 (Version 1)
Quarter: 2018Q3

REPORT INFORMATION
  Report Type: Spontaneous
  Country: DK (occurrence: DK)
  Receive Date: 20180814
  Receipt Date: 20180814
  Transmission Date: 20181010
  Serious: Yes (Life-Threatening, Hospitalization, Other)
  Sender: FDA-Public Use
  Company Number: DK-TAKEDA-2018MPI010474

PATIENT
  Age: 74 Year
  Sex: Male

DRUGS (6)
  1. REVLIMID [Concomitant]
     Active Substance: LENALIDOMIDE
     Indication: PLASMA CELL MYELOMA
     Dosage: 25 MG, QD
     Route: 048
     Dates: start: 20180618
  2. VELCADE [Suspect]
     Active Substance: BORTEZOMIB
     Indication: PLASMA CELL MYELOMA
     Dosage: UNK
     Route: 058
     Dates: start: 20180618, end: 20180709
  3. HJERTEMAGNYL                       /00002701/ [Concomitant]
     Active Substance: ASPIRIN
     Indication: ATHEROSCLEROSIS PROPHYLAXIS
     Dosage: 150 MG, QD
     Route: 048
     Dates: start: 20180618
  4. ACICLOVIR [Concomitant]
     Active Substance: ACYCLOVIR
     Indication: PROPHYLAXIS
     Dosage: 800 MG, UNK
     Route: 048
     Dates: start: 20180618
  5. ALLOPURINOL. [Suspect]
     Active Substance: ALLOPURINOL
     Indication: PLASMA CELL MYELOMA
     Dosage: 600 MG, 1/WEEK
     Route: 048
     Dates: start: 20180618, end: 20180709
  6. FINASTERID [Concomitant]
     Active Substance: FINASTERIDE
     Indication: BENIGN PROSTATIC HYPERPLASIA
     Dosage: 5 MG, QD
     Route: 050
     Dates: start: 20171121

REACTIONS (7)
  - Tremor [Recovered/Resolved]
  - General physical health deterioration [Recovered/Resolved]
  - Malaise [Recovered/Resolved]
  - Dyspnoea [Recovered/Resolved]
  - Rash generalised [Recovered/Resolved]
  - Anaphylactic reaction [Recovered/Resolved]
  - Prolonged expiration [Recovered/Resolved]

NARRATIVE: CASE EVENT DATE: 20180709
